FAERS Safety Report 24106438 (Version 1)
Quarter: 2024Q3

REPORT INFORMATION
  Report Type: Spontaneous
  Country: CA (occurrence: CA)
  Receive Date: 20240717
  Receipt Date: 20240717
  Transmission Date: 20241017
  Serious: Yes (Hospitalization)
  Sender: TEVA
  Company Number: CA-TEVA-VS-3220276

PATIENT
  Age: 83 Year
  Sex: Female

DRUGS (1)
  1. DULOXETINE [Suspect]
     Active Substance: DULOXETINE
     Indication: Product used for unknown indication
     Dosage: DOSE FORM:CAPSULE, DELAYED RELEASE
     Route: 065

REACTIONS (3)
  - Hyponatraemia [Unknown]
  - Starvation [Unknown]
  - Inappropriate antidiuretic hormone secretion [Unknown]
